FAERS Safety Report 23383998 (Version 1)
Quarter: 2024Q1

REPORT INFORMATION
  Report Type: Report from Study
  Country: US (occurrence: US)
  Receive Date: 20240109
  Receipt Date: 20240109
  Transmission Date: 20240409
  Serious: Yes (Hospitalization)
  Sender: FDA-Public Use
  Company Number: US-TAKEDA-2023TUS120945

PATIENT
  Age: 54 Year
  Sex: Female

DRUGS (8)
  1. TEDUGLUTIDE [Suspect]
     Active Substance: TEDUGLUTIDE
     Indication: Product used for unknown indication
     Dosage: 0.395 MILLILITER, QD
     Route: 058
     Dates: start: 20230830
  2. TEDUGLUTIDE [Suspect]
     Active Substance: TEDUGLUTIDE
     Indication: Product used for unknown indication
     Dosage: 0.395 MILLILITER, QD
     Route: 058
     Dates: start: 20230830
  3. TEDUGLUTIDE [Suspect]
     Active Substance: TEDUGLUTIDE
     Indication: Product used for unknown indication
     Dosage: 0.395 MILLILITER, QD
     Route: 058
     Dates: start: 20230830
  4. TEDUGLUTIDE [Suspect]
     Active Substance: TEDUGLUTIDE
     Indication: Product used for unknown indication
     Dosage: 0.395 MILLILITER, QD
     Route: 058
     Dates: start: 20230830
  5. TEDUGLUTIDE [Suspect]
     Active Substance: TEDUGLUTIDE
     Dosage: 0.395 MILLILITER, QD
     Route: 030
  6. TEDUGLUTIDE [Suspect]
     Active Substance: TEDUGLUTIDE
     Dosage: 0.395 MILLILITER, QD
     Route: 030
  7. TEDUGLUTIDE [Suspect]
     Active Substance: TEDUGLUTIDE
     Dosage: 0.395 MILLILITER, QD
     Route: 030
  8. TEDUGLUTIDE [Suspect]
     Active Substance: TEDUGLUTIDE
     Dosage: 0.395 MILLILITER, QD
     Route: 030

REACTIONS (2)
  - Hospitalisation [Unknown]
  - Nausea [Unknown]

NARRATIVE: CASE EVENT DATE: 20231213
